FAERS Safety Report 14562401 (Version 3)
Quarter: 2018Q2

REPORT INFORMATION
  Report Type: Spontaneous
  Country: PT (occurrence: PT)
  Receive Date: 20180222
  Receipt Date: 20180411
  Transmission Date: 20180711
  Serious: Yes (Hospitalization, Other)
  Sender: FDA-Public Use
  Company Number: PT-AUROBINDO-AUR-APL-2018-008899

PATIENT
  Age: 61 Year
  Sex: Female

DRUGS (5)
  1. DIAZEPAM. [Concomitant]
     Active Substance: DIAZEPAM
     Dosage: DIVIDED INTO FOUR DAILY DOSES ()
  2. DIAZEPAM. [Concomitant]
     Active Substance: DIAZEPAM
     Dosage: DIVIDED INTO FOUR DAILY DOSES ()
  3. VENLAFAXINE PROLONGED-RELEASE CAPSULE, HARD [Suspect]
     Active Substance: VENLAFAXINE HYDROCHLORIDE
     Indication: DEPRESSION
     Dosage: 150 MG, UNK
     Route: 065
  4. DIAZEPAM. [Concomitant]
     Active Substance: DIAZEPAM
     Indication: PRODUCT USED FOR UNKNOWN INDICATION
     Dosage: DIVIDED INTO FOUR DAILY DOSES
  5. VENLAFAXINE PROLONGED-RELEASE CAPSULE, HARD [Suspect]
     Active Substance: VENLAFAXINE HYDROCHLORIDE
     Dosage: 75 MG, UNK
     Route: 065

REACTIONS (8)
  - Serotonin syndrome [Recovered/Resolved]
  - Muscle rigidity [Recovered/Resolved]
  - Drug ineffective [Recovered/Resolved]
  - Tachycardia [Recovered/Resolved]
  - Disorientation [Recovered/Resolved]
  - Psychomotor hyperactivity [Recovered/Resolved]
  - Tremor [Recovered/Resolved]
  - Musculoskeletal stiffness [Recovered/Resolved]
